FAERS Safety Report 9656059 (Version 1)
Quarter: 2013Q4

REPORT INFORMATION
  Report Type: Spontaneous
  Country: US (occurrence: None)
  Receive Date: 20131029
  Receipt Date: 20131029
  Transmission Date: 20140711
  Serious: No
  Sender: FDA-Public Use
  Company Number: None

PATIENT
  Age: 5 Year
  Sex: Female
  Weight: 23.13 kg

DRUGS (1)
  1. CEPHALEXIN [Suspect]
     Indication: SKIN INFECTION
     Route: 048
     Dates: start: 20131021, end: 20131025

REACTIONS (7)
  - Blister [None]
  - Rash maculo-papular [None]
  - Pruritus [None]
  - Scratch [None]
  - Haemorrhage [None]
  - Scab [None]
  - Rash [None]
